FAERS Safety Report 23427089 (Version 1)
Quarter: 2024Q1

REPORT INFORMATION
  Report Type: Spontaneous
  Country: US (occurrence: None)
  Receive Date: 20240119
  Receipt Date: 20240119
  Transmission Date: 20240410
  Serious: Yes (Hospitalization)
  Sender: FDA-Public Use
  Company Number: None

PATIENT
  Age: 51 Year
  Sex: Female

DRUGS (1)
  1. HUMIRA [Suspect]
     Active Substance: ADALIMUMAB
     Indication: Crohn^s disease
     Dosage: 40MG EVERY OTHER WEEK

REACTIONS (8)
  - Haematemesis [None]
  - Renal failure [None]
  - Laryngitis [None]
  - Bronchitis [None]
  - Pneumonia [None]
  - Cellulitis [None]
  - Sepsis [None]
  - Femur fracture [None]
